FAERS Safety Report 10334913 (Version 3)
Quarter: 2014Q3

REPORT INFORMATION
  Report Type: Spontaneous
  Country: JP (occurrence: JP)
  Receive Date: 20140723
  Receipt Date: 20140805
  Transmission Date: 20150326
  Serious: Yes (Hospitalization)
  Sender: FDA-Public Use
  Company Number: JP-ELI_LILLY_AND_COMPANY-JP201407002070

PATIENT
  Age: 83 Year
  Sex: Female

DRUGS (7)
  1. DEPAS [Concomitant]
     Active Substance: ETIZOLAM
  2. SULPIRIDE [Concomitant]
     Active Substance: SULPIRIDE
  3. MOSAPRIDE [Concomitant]
     Active Substance: MOSAPRIDE
  4. REBAMIPIDE [Concomitant]
     Active Substance: REBAMIPIDE
  5. EBASTEL [Concomitant]
     Active Substance: EBASTINE
  6. FORTEO [Suspect]
     Active Substance: TERIPARATIDE
     Indication: OSTEOPOROSIS
     Dosage: 20 UG, UNK
     Route: 058
     Dates: start: 201404, end: 201406
  7. MAGMITT [Concomitant]
     Active Substance: MAGNESIUM OXIDE

REACTIONS (2)
  - Malaise [Recovered/Resolved]
  - Hypercalcaemia [Recovered/Resolved]

NARRATIVE: CASE EVENT DATE: 20140625
